FAERS Safety Report 23527096 (Version 1)
Quarter: 2024Q1

REPORT INFORMATION
  Report Type: Spontaneous
  Country: US (occurrence: None)
  Receive Date: 20240215
  Receipt Date: 20240215
  Transmission Date: 20240410
  Serious: No
  Sender: FDA-Public Use
  Company Number: None

PATIENT
  Age: 7 Year
  Sex: Male
  Weight: 21.6 kg

DRUGS (5)
  1. MONTELUKAST [Suspect]
     Active Substance: MONTELUKAST SODIUM
     Indication: Asthma
     Dates: start: 20180201, end: 20240114
  2. BUDESONIDE [Concomitant]
     Active Substance: BUDESONIDE
  3. ALBUTEROL [Concomitant]
     Active Substance: ALBUTEROL
  4. ZYRTEC [Concomitant]
     Active Substance: CETIRIZINE HYDROCHLORIDE
  5. Renzos childrens vitamins [Concomitant]

REACTIONS (7)
  - Therapy cessation [None]
  - Abnormal behaviour [None]
  - Laziness [None]
  - Insomnia [None]
  - Hypophagia [None]
  - Crying [None]
  - Depressed mood [None]

NARRATIVE: CASE EVENT DATE: 20240201
